FAERS Safety Report 14690204 (Version 1)
Quarter: 2018Q1

REPORT INFORMATION
  Report Type: Spontaneous
  Country: ES (occurrence: ES)
  Receive Date: 20180328
  Receipt Date: 20180328
  Transmission Date: 20180509
  Serious: Yes (Hospitalization)
  Sender: FDA-Public Use
  Company Number: ES-TEVA-2018-ES-872341

PATIENT
  Age: 55 Year
  Sex: Male

DRUGS (3)
  1. PRAMIPEXOLE. [Suspect]
     Active Substance: PRAMIPEXOLE
     Indication: PARKINSON^S DISEASE
     Dosage: 2,36 MG DAILY
     Route: 048
  2. QUETIAPINE. [Interacting]
     Active Substance: QUETIAPINE
     Indication: PSYCHOTIC DISORDER
     Dosage: 25 MG UNA VEZ AL D?A
     Route: 048
  3. SINEMET PLUS 25 MG/100 MG COMPRIMIDOS , 100 COMPRIMIDOS [Interacting]
     Active Substance: CARBIDOPA\LEVODOPA
     Indication: PARKINSON^S DISEASE
     Dosage: 1 CP X 3/ DAY
     Route: 048

REACTIONS (3)
  - Contraindicated drug prescribed [Recovered/Resolved]
  - Drug interaction [Unknown]
  - Acute psychosis [Recovered/Resolved]
